FAERS Safety Report 22193952 (Version 3)
Quarter: 2024Q4

REPORT INFORMATION
  Report Type: Spontaneous
  Country: NL (occurrence: NL)
  Receive Date: 20230411
  Receipt Date: 20241211
  Transmission Date: 20250115
  Serious: Yes (Death)
  Sender: CELLTRION
  Company Number: NL-CELLTRION INC.-2023NL006800

PATIENT

DRUGS (2)
  1. RITUXIMAB [Suspect]
     Active Substance: RITUXIMAB
     Indication: Product used for unknown indication
     Dosage: UNK
  2. CISPLATIN\CYTARABINE\DEXAMETHASONE [Suspect]
     Active Substance: CISPLATIN\CYTARABINE\DEXAMETHASONE
     Indication: Product used for unknown indication
     Dosage: UNK

REACTIONS (4)
  - Refraction disorder [Fatal]
  - Neoplasm progression [Fatal]
  - Skin lesion [Fatal]
  - Pleural effusion [Fatal]
